FAERS Safety Report 9550418 (Version 1)
Quarter: 2013Q3

REPORT INFORMATION
  Report Type: Spontaneous
  Country: US (occurrence: US)
  Receive Date: 20130924
  Receipt Date: 20130924
  Transmission Date: 20140515
  Serious: No
  Sender: FDA-Public Use
  Company Number: US-SANOFI-AVENTIS-2013SA076766

PATIENT
  Age: 70 Year
  Sex: Female
  Weight: 54 kg

DRUGS (14)
  1. AUBAGIO [Suspect]
     Indication: MULTIPLE SCLEROSIS
     Route: 048
     Dates: start: 201211, end: 201306
  2. CRESTOR [Concomitant]
  3. ERGOCALCIFEROL [Concomitant]
     Dosage: DOSE:2000 UNIT(S)
  4. ALL OTHER THERAPEUTIC PRODUCTS [Concomitant]
  5. SONATA [Concomitant]
  6. HYDROCHLOROTHIAZIDE [Concomitant]
  7. LAMICTAL [Concomitant]
  8. SEROQUEL [Concomitant]
  9. LORAZEPAM [Concomitant]
  10. LEVOTHYROXINE [Concomitant]
  11. LEVETIRACETAM [Concomitant]
  12. GABAPENTIN [Concomitant]
  13. LISINOPRIL [Concomitant]
  14. PRIMIDONE [Concomitant]

REACTIONS (4)
  - Rash [Recovered/Resolved]
  - Flushing [Recovered/Resolved]
  - Diarrhoea [Recovered/Resolved]
  - Alopecia [Recovered/Resolved]
